FAERS Safety Report 7985270-5 (Version None)
Quarter: 2011Q4

REPORT INFORMATION
  Report Type: 
  Country: None (occurrence: None)
  Receive Date: 20111216
  Receipt Date: 20111209
  Transmission Date: 20120403
  Serious: Yes (Hospitalization)
  Sender: FDA-Public Use
  Company Number: JP-ROCHE-1009322

PATIENT
  Age: 63 Year
  Sex: Male

DRUGS (10)
  1. MOBIC [Concomitant]
     Indication: RHEUMATOID ARTHRITIS
     Route: 048
  2. ALFAROL [Concomitant]
     Indication: PROPHYLAXIS
     Route: 048
  3. ACTEMRA [Suspect]
     Dosage: 480-500MG
     Route: 041
     Dates: start: 20101027
  4. FOLIC ACID [Concomitant]
     Indication: PROPHYLAXIS
     Route: 048
  5. PREDNISOLONE [Concomitant]
     Indication: RHEUMATOID ARTHRITIS
     Route: 048
  6. ACTEMRA [Suspect]
     Dosage: 480-500MG
     Route: 041
     Dates: start: 20090826, end: 20100818
  7. ISONIAZID [Concomitant]
     Indication: RHEUMATOID ARTHRITIS
     Route: 048
  8. RHEUMATREX [Concomitant]
     Indication: RHEUMATOID ARTHRITIS
     Route: 048
  9. ACTEMRA [Suspect]
     Indication: RHEUMATOID ARTHRITIS
     Dosage: 480-500MG
     Route: 041
     Dates: start: 20081216, end: 20090715
  10. MUCOSTA [Concomitant]
     Indication: PROPHYLAXIS
     Route: 048

REACTIONS (4)
  - PYREXIA [None]
  - CATARACT [None]
  - ABDOMINAL PAIN [None]
  - ECZEMA VESICULAR [None]
